FAERS Safety Report 9565253 (Version 1)
Quarter: 2013Q3

REPORT INFORMATION
  Report Type: Spontaneous
  Country: US (occurrence: US)
  Receive Date: 20130930
  Receipt Date: 20130930
  Transmission Date: 20140515
  Serious: Yes (Other)
  Sender: FDA-Public Use
  Company Number: US-MYLANLABS-2013S1021155

PATIENT
  Age: 71 Year
  Sex: Female
  Weight: 63.5 kg

DRUGS (4)
  1. ROPINIROLE EXTENDED-RELEASE TABLETS 12MG (ROPINIROLE) [Suspect]
     Indication: RESTLESS LEGS SYNDROME
     Route: 048
     Dates: start: 2012, end: 20130911
  2. ROPINIROLE EXTENDED-RELEASE TABLETS 12MG (ROPINIROLE) [Suspect]
     Indication: OFF LABEL USE
     Route: 048
     Dates: start: 2012, end: 20130911
  3. SIMVASTATIN [Concomitant]
     Indication: BLOOD CHOLESTEROL INCREASED
     Route: 048
  4. MULTIVITAMINS [Concomitant]
     Route: 048

REACTIONS (2)
  - Restless legs syndrome [Not Recovered/Not Resolved]
  - Wrong technique in drug usage process [Recovered/Resolved]
